FAERS Safety Report 10027425 (Version 3)
Quarter: 2014Q2

REPORT INFORMATION
  Report Type: Report from Study
  Country: US (occurrence: US)
  Receive Date: 20140321
  Receipt Date: 20140416
  Transmission Date: 20141212
  Serious: Yes (Death, Hospitalization)
  Sender: FDA-Public Use
  Company Number: PHHO2014US003823

PATIENT
  Sex: Male
  Weight: 115 kg

DRUGS (3)
  1. CARBOPLATIN [Suspect]
     Indication: METASTATIC MALIGNANT MELANOMA
     Dosage: AUC 5 DAY 1
     Route: 042
     Dates: start: 20140221, end: 20140221
  2. BEVACIZUMAB [Suspect]
     Indication: METASTATIC MALIGNANT MELANOMA
     Dosage: 10 MG/KG, UNK
     Route: 042
     Dates: start: 20140221, end: 20140321
  3. TAXOL [Suspect]
     Indication: METASTATIC MALIGNANT MELANOMA
     Dosage: 80 MG/M2, UNK
     Route: 042
     Dates: start: 20140221, end: 20140321

REACTIONS (1)
  - Gastric perforation [Fatal]
